FAERS Safety Report 10586523 (Version 2)
Quarter: 2015Q2

REPORT INFORMATION
  Report Type: Report from Study
  Country: US (occurrence: US)
  Receive Date: 20141117
  Receipt Date: 20150511
  Transmission Date: 20150821
  Serious: Yes (Hospitalization)
  Sender: FDA-Public Use
  Company Number: US-BIOGENIDEC-2014BI117557

PATIENT
  Age: 43 Year
  Sex: Male

DRUGS (1)
  1. TYSABRI [Suspect]
     Active Substance: NATALIZUMAB
     Indication: MULTIPLE SCLEROSIS
     Route: 042
     Dates: start: 20071219

REACTIONS (7)
  - Pharyngeal oedema [Recovered/Resolved]
  - Enlarged uvula [Recovered/Resolved]
  - Dyspnoea [Recovered/Resolved]
  - Sleep disorder [Unknown]
  - Oropharyngeal pain [Recovered/Resolved]
  - Ear infection [Recovered/Resolved]
  - Headache [Recovered/Resolved]

NARRATIVE: CASE EVENT DATE: 201408
